APPROVED DRUG PRODUCT: OXAPROZIN
Active Ingredient: OXAPROZIN
Strength: 600MG
Dosage Form/Route: TABLET;ORAL
Application: A075842 | Product #001
Applicant: AARXION ANDA HOLDING LLC
Approved: Apr 12, 2001 | RLD: No | RS: No | Type: DISCN